FAERS Safety Report 5846220-0 (Version None)
Quarter: 2008Q3

REPORT INFORMATION
  Report Type: 
  Country: None (occurrence: None)
  Receive Date: 20080813
  Receipt Date: 20080506
  Transmission Date: 20090109
  Serious: Yes (Hospitalization, Other)
  Sender: FDA-Public Use
  Company Number: ADE2008-0186

PATIENT
  Age: 38 Year
  Sex: Female

DRUGS (1)
  1. FLUOXETINE [Suspect]
     Indication: STRESS
     Dosage: 40MG, DAILY; ORAL
     Route: 048

REACTIONS (2)
  - MACULAR OEDEMA [None]
  - RETINAL VEIN OCCLUSION [None]
